FAERS Safety Report 15813380 (Version 4)
Quarter: 2019Q1

REPORT INFORMATION
  Report Type: Spontaneous
  Country: VN (occurrence: VN)
  Receive Date: 20190111
  Receipt Date: 20190125
  Transmission Date: 20190417
  Serious: Yes (Death, Other)
  Sender: FDA-Public Use
  Company Number: IND-VN-009507513-1812VNM012579

PATIENT
  Age: 75 Year
  Sex: Male
  Weight: 60 kg

DRUGS (5)
  1. SUFENTANIL [Concomitant]
     Active Substance: SUFENTANIL
     Dosage: UNK
  2. ESMERON [Suspect]
     Active Substance: ROCURONIUM BROMIDE
     Indication: ENDOTRACHEAL INTUBATION
     Dosage: 0.6 MILLIGRAM/KILOGRAM
     Route: 042
     Dates: start: 20181226, end: 20181226
  3. ESMERON [Suspect]
     Active Substance: ROCURONIUM BROMIDE
     Dosage: 0.3 MILLIGRAM/KILOGRAM
     Route: 042
     Dates: start: 20181226, end: 20181226
  4. PROPOFOL. [Concomitant]
     Active Substance: PROPOFOL
     Dosage: UNK
  5. SEVOFLURANE. [Concomitant]
     Active Substance: SEVOFLURANE
     Dosage: UNK

REACTIONS (4)
  - Product storage error [Unknown]
  - Drug effect decreased [Recovered/Resolved]
  - Pneumonia [Unknown]
  - Sepsis [Fatal]

NARRATIVE: CASE EVENT DATE: 2018
